FAERS Safety Report 5175195-5 (Version None)
Quarter: 2006Q4

REPORT INFORMATION
  Report Type: 
  Country: None (occurrence: None)
  Receive Date: 20061206
  Receipt Date: 20061120
  Transmission Date: 20070319
  Serious: Yes (Life-Threatening, Hospitalization)
  Sender: FDA-Public Use
  Company Number: DSA_29044_2006

PATIENT
  Age: 82 Year
  Sex: Male

DRUGS (6)
  1. RENIVACE [Suspect]
     Indication: HYPERTENSION
     Dosage: 1.25 MG BID PO
     Route: 048
     Dates: start: 20061107, end: 20061109
  2. PANALDINE [Concomitant]
  3. LIVALO [Concomitant]
  4. ASPIRIN [Concomitant]
  5. AMLODIPINE BESYLATE [Concomitant]
  6. TAKEPRON [Concomitant]

REACTIONS (2)
  - PHARYNGEAL OEDEMA [None]
  - RESPIRATORY DISTRESS [None]
